FAERS Safety Report 5151927-7 (Version None)
Quarter: 2006Q4

REPORT INFORMATION
  Report Type: 
  Country: None (occurrence: None)
  Receive Date: 20061106
  Receipt Date: 20061031
  Transmission Date: 20070319
  Serious: Yes (Other)
  Sender: FDA-Public Use
  Company Number: 200410256BYL

PATIENT
  Age: 32 Year
  Sex: Male

DRUGS (25)
  1. KOGENATE [Suspect]
     Indication: FACTOR VIII DEFICIENCY
     Dosage: 1000 IU, TOTAL DAILY, INTRAVENOUS
     Route: 042
     Dates: start: 19930101, end: 19940101
  2. KOGENATE [Suspect]
     Indication: FACTOR VIII DEFICIENCY
     Dosage: 1000 IU, TOTAL DAILY, INTRAVENOUS
     Route: 042
     Dates: start: 19940711, end: 19940713
  3. KOGENATE [Suspect]
     Indication: FACTOR VIII DEFICIENCY
     Dosage: 1000 IU, TOTAL DAILY, INTRAVENOUS
     Route: 042
     Dates: start: 19941003, end: 19941005
  4. KOGENATE [Suspect]
     Indication: FACTOR VIII DEFICIENCY
     Dosage: 1000 IU, TOTAL DAILY, INTRAVENOUS
     Route: 042
     Dates: start: 19941213, end: 19941214
  5. KOGENATE [Suspect]
     Indication: FACTOR VIII DEFICIENCY
     Dosage: 1000 IU, TOTAL DAILY, INTRAVENOUS
     Route: 042
     Dates: start: 19941220, end: 19941221
  6. KOGENATE [Suspect]
     Indication: FACTOR VIII DEFICIENCY
     Dosage: 1000 IU, TOTAL DAILY, INTRAVENOUS
     Route: 042
     Dates: start: 19950214, end: 19950217
  7. KOGENATE [Suspect]
     Indication: FACTOR VIII DEFICIENCY
     Dosage: 1000 IU, TOTAL DAILY, INTRAVENOUS
     Route: 042
     Dates: start: 19950522, end: 19950523
  8. KOGENATE [Suspect]
     Indication: FACTOR VIII DEFICIENCY
     Dosage: 1000 IU, TOTAL DAILY, INTRAVENOUS
     Route: 042
     Dates: start: 19950714, end: 19950715
  9. KOGENATE [Suspect]
     Indication: FACTOR VIII DEFICIENCY
     Dosage: 1000 IU, TOTAL DAILY, INTRAVENOUS
     Route: 042
     Dates: start: 19950101
  10. KOGENATE [Suspect]
     Indication: FACTOR VIII DEFICIENCY
     Dosage: 1000 IU, TOTAL DAILY, INTRAVENOUS
     Route: 042
     Dates: start: 19950430
  11. KOGENATE [Suspect]
     Dates: start: 19891101, end: 19900326
  12. KOGENATE [Suspect]
     Dates: start: 19900502, end: 19901030
  13. KOGENATE [Suspect]
     Dates: start: 19901103, end: 19910401
  14. KOGENATE (FACTOR VIII (ANTIHAEMOPHILIC FACTOR)S [Concomitant]
     Dates: start: 19911210, end: 19911215
  15. KOGENATE [Suspect]
     Dates: start: 19920325, end: 19920710
  16. KOGENATE [Suspect]
     Dates: start: 19911216, end: 19920802
  17. KOGENATE [Suspect]
     Dates: start: 19921001, end: 19921210
  18. KOGENATE [Suspect]
     Dates: start: 19921106, end: 19921116
  19. KOGENATE [Suspect]
     Dates: start: 19921227, end: 19930318
  20. KOGENATE [Suspect]
     Dates: start: 19930410, end: 19930511
  21. KOGENATE [Suspect]
     Dates: start: 19930610
  22. AZT [Concomitant]
  23. LAMIVUDINE [Concomitant]
  24. D4T [Concomitant]
  25. NELFINAVIR [Concomitant]

REACTIONS (2)
  - ANTIBODY TEST POSITIVE [None]
  - FACTOR VIII INHIBITION [None]
